FAERS Safety Report 17259397 (Version 1)
Quarter: 2020Q1

REPORT INFORMATION
  Report Type: Spontaneous
  Country: US (occurrence: US)
  Receive Date: 20200110
  Receipt Date: 20200110
  Transmission Date: 20200409
  Serious: Yes (Death, Hospitalization)
  Sender: FDA-Public Use
  Company Number: US-BAYER-2020-003289

PATIENT
  Age: 51 Year
  Sex: Female

DRUGS (1)
  1. ACETYLSALICYLIC ACID [Suspect]
     Active Substance: ASPIRIN
     Route: 048

REACTIONS (3)
  - Intentional overdose [Fatal]
  - Toxicity to various agents [Fatal]
  - Intentional product misuse [Fatal]
